FAERS Safety Report 19176414 (Version 1)
Quarter: 2021Q2

REPORT INFORMATION
  Report Type: Spontaneous
  Country: GB (occurrence: GB)
  Receive Date: 20210424
  Receipt Date: 20210424
  Transmission Date: 20210717
  Serious: Yes (Disabling, Other)
  Sender: FDA-Public Use
  Company Number: GB-TEVA-2021-GB-1903441

PATIENT
  Age: 69 Year
  Sex: Female
  Weight: 50.8 kg

DRUGS (11)
  1. CALCEOS [Concomitant]
     Active Substance: CALCIUM CARBONATE\CHOLECALCIFEROL
     Indication: ILL-DEFINED DISORDER
  2. GAVISCON DOUBLE ACTION [Concomitant]
     Indication: ILL-DEFINED DISORDER
  3. PREDNISOLONE. [Suspect]
     Active Substance: PREDNISOLONE
     Indication: GIANT CELL ARTERITIS
     Dosage: STARTED ON 60MG, THEN 40MG, THEN 20 DOWN TO 1MG
     Route: 048
     Dates: start: 20190124, end: 20190819
  4. FUROSEMIDE SODIUM [Concomitant]
     Active Substance: FUROSEMIDE SODIUM
     Indication: ILL-DEFINED DISORDER
  5. NAFTIDROFURYL [Concomitant]
     Active Substance: NAFRONYL
     Indication: ILL-DEFINED DISORDER
  6. SALBUTAMOL [Concomitant]
     Active Substance: ALBUTEROL
     Indication: ILL-DEFINED DISORDER
  7. ALENDRONIC ACID [Concomitant]
     Active Substance: ALENDRONIC ACID
     Indication: ILL-DEFINED DISORDER
  8. NARATRIPTAN [Concomitant]
     Active Substance: NARATRIPTAN HYDROCHLORIDE
     Indication: ILL-DEFINED DISORDER
  9. TRIMIPRAMINE [Concomitant]
     Active Substance: TRIMIPRAMINE
     Indication: ILL-DEFINED DISORDER
  10. FISH OIL [Concomitant]
     Active Substance: FISH OIL
     Indication: ILL-DEFINED DISORDER
  11. LANSOPRAZOLE. [Concomitant]
     Active Substance: LANSOPRAZOLE
     Indication: ILL-DEFINED DISORDER

REACTIONS (9)
  - Insomnia [Not Recovered/Not Resolved]
  - Barrett^s oesophagus [Unknown]
  - Dyspnoea [Not Recovered/Not Resolved]
  - Cataract [Unknown]
  - Vision blurred [Not Recovered/Not Resolved]
  - Ocular hyperaemia [Not Recovered/Not Resolved]
  - Rales [Not Recovered/Not Resolved]
  - Fluid retention [Not Recovered/Not Resolved]
  - Chronic obstructive pulmonary disease [Unknown]

NARRATIVE: CASE EVENT DATE: 20190124
